FAERS Safety Report 8055090-4 (Version None)
Quarter: 2011Q4

REPORT INFORMATION
  Report Type: 
  Country: None (occurrence: None)
  Receive Date: 20111216
  Receipt Date: 20110531
  Transmission Date: 20120403
  Serious: Yes (Other)
  Sender: FDA-Public Use
  Company Number: 284265USA

PATIENT
  Age: 26 Year
  Sex: Female
  Weight: 112.4921 kg

DRUGS (4)
  1. PRISTIQ [Concomitant]
  2. IBUPROFEN [Concomitant]
  3. ALPRAZOLAM [Concomitant]
  4. PARAGARD T 380A [Suspect]
     Indication: CONTRACEPTION
     Dosage: I.U.
     Route: 015
     Dates: start: 20050401, end: 20110527

REACTIONS (3)
  - DEVICE DISLOCATION [None]
  - VAGINAL HAEMORRHAGE [None]
  - DEVICE EXPULSION [None]
